FAERS Safety Report 8844708 (Version 1)
Quarter: 2012Q4

REPORT INFORMATION
  Report Type: Spontaneous
  Country: US (occurrence: None)
  Receive Date: 20121016
  Receipt Date: 20121016
  Transmission Date: 20130627
  Serious: Yes (Hospitalization)
  Sender: FDA-Public Use
  Company Number: None

PATIENT
  Age: 92 Year
  Sex: Male
  Weight: 66.2 kg

DRUGS (12)
  1. CELEBREX [Suspect]
     Indication: PAIN
     Route: 048
  2. ASPIRIN [Suspect]
     Route: 048
  3. COLACE [Concomitant]
  4. VERPAMIL [Concomitant]
  5. LISINOPRIL [Concomitant]
  6. PROSCAR [Concomitant]
  7. CRESTOR [Concomitant]
  8. ARICEPT [Concomitant]
  9. SPIRIVA [Concomitant]
  10. NEXIUM [Concomitant]
  11. REMERON [Concomitant]
  12. IPRATROPIUM/ALBUTEROL [Concomitant]

REACTIONS (1)
  - Gastrointestinal haemorrhage [None]
